FAERS Safety Report 7386221-7 (Version None)
Quarter: 2011Q1

REPORT INFORMATION
  Report Type: 
  Country: None (occurrence: None)
  Receive Date: 20110329
  Receipt Date: 20110329
  Transmission Date: 20110831
  Serious: No
  Sender: FDA-Public Use
  Company Number: None

PATIENT
  Age: 42 Year
  Sex: Female
  Weight: 56.6996 kg

DRUGS (4)
  1. LUPRON DEPOT [Suspect]
     Indication: UTERINE LEIOMYOMA
     Dosage: IM
     Route: 030
     Dates: start: 20110117, end: 20110215
  2. LUPRON DEPOT [Suspect]
     Indication: ANAEMIA
     Dosage: IM
     Route: 030
     Dates: start: 20110117, end: 20110215
  3. LUPRON DEPOT [Suspect]
     Indication: UTERINE LEIOMYOMA
     Dosage: IM
     Route: 030
     Dates: start: 20110216, end: 20110316
  4. LUPRON DEPOT [Suspect]
     Indication: ANAEMIA
     Dosage: IM
     Route: 030
     Dates: start: 20110216, end: 20110316

REACTIONS (6)
  - MEMORY IMPAIRMENT [None]
  - FATIGUE [None]
  - DISABILITY [None]
  - SOMNOLENCE [None]
  - DISTURBANCE IN ATTENTION [None]
  - ACTIVITIES OF DAILY LIVING IMPAIRED [None]
